FAERS Safety Report 19890067 (Version 1)
Quarter: 2021Q3

REPORT INFORMATION
  Report Type: Spontaneous
  Country: US (occurrence: US)
  Receive Date: 20210927
  Receipt Date: 20210927
  Transmission Date: 20211014
  Serious: Yes (Hospitalization)
  Sender: FDA-Public Use
  Company Number: None

PATIENT
  Sex: Female

DRUGS (2)
  1. TOBRAMYCIN 300MG/5ML TOBI GEQ [Suspect]
     Active Substance: TOBRAMYCIN
     Indication: BRONCHIECTASIS
     Dosage: ?          OTHER DOSE:300MG/5ML;OTHER FREQUENCY:BID 28D ON 28D OFF;?
     Route: 055
     Dates: start: 20210323
  2. TOBRAMYCIN 300MG/5ML TOBI GEQ [Suspect]
     Active Substance: TOBRAMYCIN
     Dosage: ?          OTHER DOSE:5ML (300MG TOTAL);OTHER FREQUENCY:28D ONN 28D OFF;?
     Route: 055

REACTIONS (1)
  - Syncope [None]
